FAERS Safety Report 5420596-0 (Version None)
Quarter: 2007Q3

REPORT INFORMATION
  Report Type: 
  Country: None (occurrence: None)
  Receive Date: 20070816
  Receipt Date: 20070720
  Transmission Date: 20080115
  Serious: Yes (Other)
  Sender: FDA-Public Use
  Company Number: 6036090

PATIENT
  Age: 58 Year
  Sex: Female

DRUGS (5)
  1. FLUCONAZOLE [Suspect]
     Indication: TINEA PEDIS
     Dosage: 21,4286 MG (150 MG, INTERMITTENTLY)
  2. AMLODIPINE [Concomitant]
  3. HYDROCHLOROTHIAZIDE [Concomitant]
  4. METOCLOPRAMIDE HYDROCHLORIDE(METOCLOPRAMIDE) [Concomitant]
  5. LEVOSULPIRIDE(LEVOSULPIRIDE) [Concomitant]

REACTIONS (4)
  - BLOOD PRESSURE INCREASED [None]
  - DYSPEPSIA [None]
  - GLOMERULONEPHRITIS MEMBRANOUS [None]
  - NAUSEA [None]
